FAERS Safety Report 6189987-7 (Version None)
Quarter: 2009Q2

REPORT INFORMATION
  Report Type: 
  Country: None (occurrence: None)
  Receive Date: 20090512
  Receipt Date: 20090512
  Transmission Date: 20091009
  Serious: No
  Sender: FDA-Public Use
  Company Number: None

PATIENT
  Age: 5 Year
  Sex: Female
  Weight: 22.6799 kg

DRUGS (1)
  1. SULFAMETHOXAZOLE AND TRIMETHOPRIM [Suspect]
     Indication: CYSTITIS
     Dosage: 1 1/2 TSP 2 TIMES A DAY PO
     Route: 048
     Dates: start: 20090507, end: 20090517

REACTIONS (2)
  - PRURITUS [None]
  - RASH [None]
